FAERS Safety Report 16253709 (Version 3)
Quarter: 2019Q3

REPORT INFORMATION
  Report Type: Report from Study
  Country: None (occurrence: DE)
  Receive Date: 20190430
  Receipt Date: 20190828
  Transmission Date: 20191004
  Serious: Yes (Hospitalization, Other)
  Sender: FDA-Public Use
  Company Number: DE-ABBVIE-19K-062-2758976-00

PATIENT
  Age: 77 Year
  Sex: Female
  Weight: 77 kg

DRUGS (3)
  1. HUMIRA [Suspect]
     Active Substance: ADALIMUMAB
     Indication: PSORIATIC ARTHROPATHY
     Route: 058
     Dates: start: 20110501, end: 2019
  2. PREDNISOLON [Concomitant]
     Active Substance: PREDNISOLONE
     Indication: PSORIATIC ARTHROPATHY
     Route: 048
     Dates: start: 2004
  3. LANTUS [Concomitant]
     Active Substance: INSULIN GLARGINE
     Indication: DIABETES MELLITUS

REACTIONS (45)
  - Dysphonia [Recovered/Resolved]
  - General physical health deterioration [Not Recovered/Not Resolved]
  - Gait inability [Recovered/Resolved]
  - Gout [Recovering/Resolving]
  - Oral fungal infection [Unknown]
  - Asthenia [Recovered/Resolved]
  - Feeling abnormal [Not Recovered/Not Resolved]
  - Weight decreased [Not Recovered/Not Resolved]
  - Diabetes mellitus [Unknown]
  - Hypoacusis [Not Recovered/Not Resolved]
  - Sinusitis [Not Recovered/Not Resolved]
  - Fall [Recovered/Resolved]
  - Sepsis [Recovering/Resolving]
  - Dysstasia [Not Recovered/Not Resolved]
  - Gastrointestinal hypomotility [Unknown]
  - Stomatitis [Unknown]
  - Anaemia [Unknown]
  - Peripheral swelling [Not Recovered/Not Resolved]
  - Confusional state [Unknown]
  - Laryngeal disorder [Not Recovered/Not Resolved]
  - Lymphoma [Not Recovered/Not Resolved]
  - Walking aid user [Not Recovered/Not Resolved]
  - Haemorrhoids [Unknown]
  - Mediastinal disorder [Not Recovered/Not Resolved]
  - Secretion discharge [Recovered/Resolved]
  - Haemorrhage [Recovered/Resolved]
  - Bloody discharge [Not Recovered/Not Resolved]
  - Blood glucose increased [Recovered/Resolved]
  - Mouth haemorrhage [Recovered/Resolved]
  - Back pain [Not Recovered/Not Resolved]
  - Pulmonary fibrosis [Unknown]
  - Decreased appetite [Not Recovered/Not Resolved]
  - Mobility decreased [Not Recovered/Not Resolved]
  - Asthenia [Recovered/Resolved]
  - Pharyngeal disorder [Not Recovered/Not Resolved]
  - Dysphonia [Not Recovered/Not Resolved]
  - Fluid retention [Unknown]
  - Laryngitis [Not Recovered/Not Resolved]
  - Rehabilitation therapy [Unknown]
  - Weight decreased [Unknown]
  - Renal function test abnormal [Unknown]
  - Dysphagia [Not Recovered/Not Resolved]
  - Hospitalisation [Unknown]
  - Balance disorder [Not Recovered/Not Resolved]
  - Gait inability [Not Recovered/Not Resolved]

NARRATIVE: CASE EVENT DATE: 2013
